FAERS Safety Report 4464927-7 (Version None)
Quarter: 2004Q4

REPORT INFORMATION
  Report Type: 
  Country: None (occurrence: None)
  Receive Date: 20041004
  Receipt Date: 20040305
  Transmission Date: 20050328
  Serious: No
  Sender: FDA-Public Use
  Company Number: 364916

PATIENT
  Age: 90 Year
  Sex: Female

DRUGS (2)
  1. COREG [Suspect]
     Route: 048
     Dates: start: 20040226
  2. ASPIRIN [Concomitant]

REACTIONS (1)
  - HAEMOPTYSIS [None]
